FAERS Safety Report 23045270 (Version 1)
Quarter: 2023Q4

REPORT INFORMATION
  Report Type: Spontaneous
  Country: US (occurrence: US)
  Receive Date: 20231009
  Receipt Date: 20231009
  Transmission Date: 20240109
  Serious: No
  Sender: FDA-Public Use
  Company Number: US-drreddys-LIT/USA/23/0178855

PATIENT
  Age: 4 Year
  Sex: Female

DRUGS (7)
  1. MERCAPTOPURINE [Suspect]
     Active Substance: MERCAPTOPURINE
     Indication: B-cell type acute leukaemia
     Dosage: CYCLE 3
     Route: 048
  2. MERCAPTOPURINE [Suspect]
     Active Substance: MERCAPTOPURINE
     Dosage: RESTARTED AT A DOSE OF 50 PERCENT
     Route: 048
  3. MERCAPTOPURINE [Suspect]
     Active Substance: MERCAPTOPURINE
     Dosage: INCREASED OVER TIME TO AN ULTIMATE DOSE OF 175 PERCENT
     Route: 048
  4. METHOTREXATE [Suspect]
     Active Substance: METHOTREXATE
     Indication: B-cell type acute leukaemia
  5. ALLOPURINOL [Concomitant]
     Active Substance: ALLOPURINOL
     Indication: B-cell type acute leukaemia
     Dosage: CYCLE 3
     Route: 048
  6. ALLOPURINOL [Concomitant]
     Active Substance: ALLOPURINOL
     Dosage: RESTARTED AT A DOSE OF 50 PERCENT
     Route: 048
  7. ALLOPURINOL [Concomitant]
     Active Substance: ALLOPURINOL
     Dosage: INCREASED OVER TIME TO AN ULTIMATE DOSE OF 175 PERCENT
     Route: 048

REACTIONS (2)
  - Skin toxicity [Recovered/Resolved]
  - Hypoglycaemia [Recovered/Resolved]
